FAERS Safety Report 6339540-7 (Version None)
Quarter: 2009Q3

REPORT INFORMATION
  Report Type: 
  Country: None (occurrence: None)
  Receive Date: 20090827
  Receipt Date: 20090709
  Transmission Date: 20100115
  Serious: No
  Sender: FDA-Public Use
  Company Number: 001233

PATIENT
  Sex: Male

DRUGS (1)
  1. LACOSAMIDE [Suspect]
     Indication: CONVULSION
     Dosage: (50 MG BID INTRAVENOUS (NOT OTHERWISE SPECIFIED)), (50 MG BID ORAL), (100 MG BID ORAL)
     Route: 042

REACTIONS (2)
  - ERYTHEMA [None]
  - INFUSION SITE SWELLING [None]
